FAERS Safety Report 9701825 (Version 1)
Quarter: 2013Q4

REPORT INFORMATION
  Report Type: Spontaneous
  Country: US (occurrence: None)
  Receive Date: 20131120
  Receipt Date: 20131120
  Transmission Date: 20140711
  Serious: Yes (Hospitalization)
  Sender: FDA-Public Use
  Company Number: None

PATIENT
  Age: 1 Year
  Sex: Female
  Weight: 14.6 kg

DRUGS (6)
  1. DAUNORUBICIN [Suspect]
  2. DEXAMETHASONE [Suspect]
  3. CYTARABINE [Suspect]
  4. METHOTREXATE [Suspect]
  5. PEGASPARGASE [Suspect]
  6. VINCRISTINE SULFATE [Suspect]

REACTIONS (7)
  - Pyrexia [None]
  - Eye swelling [None]
  - Cellulitis orbital [None]
  - Hyponatraemia [None]
  - Depressed level of consciousness [None]
  - Aspergillus infection [None]
  - Necrosis [None]
